FAERS Safety Report 20443393 (Version 1)
Quarter: 2022Q1

REPORT INFORMATION
  Report Type: Spontaneous
  Country: CA (occurrence: CA)
  Receive Date: 20220208
  Receipt Date: 20220208
  Transmission Date: 20220423
  Serious: Yes (Other)
  Sender: FDA-Public Use
  Company Number: CA-BoehringerIngelheim-2022-BI-152536

PATIENT
  Age: 61 Year
  Sex: Male

DRUGS (3)
  1. JARDIANCE [Suspect]
     Active Substance: EMPAGLIFLOZIN
     Indication: Type 2 diabetes mellitus
     Route: 048
  2. GLYBURIDE [Concomitant]
     Active Substance: GLYBURIDE
     Indication: Product used for unknown indication
  3. METFORMIN [Concomitant]
     Active Substance: METFORMIN HYDROCHLORIDE
     Indication: Product used for unknown indication

REACTIONS (8)
  - Blood insulin decreased [Unknown]
  - Euglycaemic diabetic ketoacidosis [Unknown]
  - Dehydration [Unknown]
  - Hyperglycaemia [Unknown]
  - Hypophagia [Unknown]
  - Nausea [Unknown]
  - Polyuria [Unknown]
  - Product administration error [Unknown]
